FAERS Safety Report 14366585 (Version 1)
Quarter: 2018Q1

REPORT INFORMATION
  Report Type: Spontaneous
  Country: US (occurrence: US)
  Receive Date: 20180109
  Receipt Date: 20180109
  Transmission Date: 20180509
  Serious: Yes (Hospitalization)
  Sender: FDA-Public Use
  Company Number: US-SA-2018SA005047

PATIENT
  Age: 13 Year
  Sex: Male

DRUGS (1)
  1. LUMIZYME [Suspect]
     Active Substance: ALGLUCOSIDASE ALFA
     Dosage: DOSE: 2050 MG
     Route: 041
     Dates: start: 201409, end: 20171206

REACTIONS (5)
  - Pyrexia [Unknown]
  - Device related infection [Unknown]
  - Vomiting [Unknown]
  - Influenza like illness [Unknown]
  - Tremor [Unknown]

NARRATIVE: CASE EVENT DATE: 20171206
